FAERS Safety Report 9568358 (Version 1)
Quarter: 2013Q3

REPORT INFORMATION
  Report Type: Spontaneous
  Country: US (occurrence: US)
  Receive Date: 20130930
  Receipt Date: 20130930
  Transmission Date: 20140515
  Serious: No
  Sender: FDA-Public Use
  Company Number: US-AMGEN-USASP2013051433

PATIENT
  Age: 56 Year
  Sex: Female
  Weight: 53.97 kg

DRUGS (12)
  1. ENBREL [Suspect]
     Indication: PSORIATIC ARTHROPATHY
     Dosage: UNK, 2 TIMES/WK
     Route: 065
     Dates: start: 2001
  2. BABY ASPIRIN [Concomitant]
     Dosage: UNK
  3. BUSPAR [Concomitant]
     Dosage: UNK
  4. CALCIUM [Concomitant]
     Dosage: UNK
  5. FOLIC ACID [Concomitant]
     Dosage: UNK
  6. HUMIRA [Concomitant]
     Dosage: UNK
  7. LIPITOR [Concomitant]
     Dosage: UNK
  8. METHOTREXATE [Concomitant]
     Dosage: UNK
  9. MUCINEX D [Concomitant]
     Dosage: UNK
  10. MULTIVITAMINS, PLAIN [Concomitant]
     Dosage: UNK
  11. PREDNISONE [Concomitant]
     Dosage: UNK
  12. PROTONIX [Concomitant]
     Dosage: UNK

REACTIONS (3)
  - Drug hypersensitivity [Recovered/Resolved]
  - Joint swelling [Recovered/Resolved]
  - Arthralgia [Recovered/Resolved]
